FAERS Safety Report 23421772 (Version 1)
Quarter: 2024Q1

REPORT INFORMATION
  Report Type: Spontaneous
  Country: FR (occurrence: FR)
  Receive Date: 20240119
  Receipt Date: 20240119
  Transmission Date: 20240410
  Serious: Yes (Other)
  Sender: FDA-Public Use
  Company Number: FR-LMS-2023000514

PATIENT
  Sex: Female

DRUGS (2)
  1. URSODIOL [Suspect]
     Active Substance: URSODIOL
     Indication: Bile acid synthesis disorder
     Dosage: DAILY DOSE OF 600 MG/ M2 OF BODY SURFACE
     Route: 048
  2. URSODIOL [Suspect]
     Active Substance: URSODIOL
     Dosage: 200 MILLIGRAM, QD (200 MG/DAY)
     Route: 048

REACTIONS (7)
  - Hepatic failure [Not Recovered/Not Resolved]
  - Ascites [Not Recovered/Not Resolved]
  - Hepatosplenomegaly [Not Recovered/Not Resolved]
  - Jaundice [Not Recovered/Not Resolved]
  - Product administered to patient of inappropriate age [Unknown]
  - Drug ineffective for unapproved indication [Not Recovered/Not Resolved]
  - Off label use [Unknown]
